FAERS Safety Report 5953336-7 (Version None)
Quarter: 2008Q4

REPORT INFORMATION
  Report Type: 
  Country: None (occurrence: None)
  Receive Date: 20081114
  Receipt Date: 20081107
  Transmission Date: 20090506
  Serious: Yes (Hospitalization)
  Sender: FDA-Public Use
  Company Number: CA-JNJFOC-20081101690

PATIENT
  Sex: Female
  Weight: 60.5 kg

DRUGS (9)
  1. REMICADE [Suspect]
     Indication: RHEUMATOID ARTHRITIS
     Route: 042
  2. ZESTRIL [Concomitant]
     Route: 048
  3. TYLENOL [Concomitant]
     Route: 048
  4. LEUCOVORIN CALCIUM [Concomitant]
     Route: 048
  5. ACTONEL [Concomitant]
     Indication: OSTEOPOROSIS
     Route: 048
  6. TAMOX [Concomitant]
     Indication: BREAST CANCER
     Route: 048
  7. CORTISONE ACETATE [Concomitant]
     Indication: RHEUMATOID ARTHRITIS
     Route: 048
  8. METHOTREXATE [Concomitant]
     Indication: RHEUMATOID ARTHRITIS
     Route: 048
  9. TRAMACET [Concomitant]
     Indication: PAIN

REACTIONS (2)
  - ANAEMIA [None]
  - OSTEOARTHRITIS [None]
